FAERS Safety Report 4452875-8 (Version None)
Quarter: 2004Q3

REPORT INFORMATION
  Report Type: 
  Country: None (occurrence: None)
  Receive Date: 20040916
  Receipt Date: 20040906
  Transmission Date: 20050211
  Serious: No
  Sender: FDA-Public Use
  Company Number: 2004UW18894

PATIENT
  Age: 65 Year
  Sex: Female

DRUGS (2)
  1. SEROQUEL [Suspect]
     Indication: BIPOLAR DISORDER
  2. PAXIL [Concomitant]

REACTIONS (2)
  - DYSKINESIA [None]
  - DYSTONIA [None]
